FAERS Safety Report 14448976 (Version 1)
Quarter: 2018Q1

REPORT INFORMATION
  Report Type: Report from Study
  Country: US (occurrence: US)
  Receive Date: 20180126
  Receipt Date: 20180126
  Transmission Date: 20180509
  Serious: Yes (Other)
  Sender: FDA-Public Use
  Company Number: US-BRISTOL-MYERS SQUIBB COMPANY-BMS-2018-005621

PATIENT
  Sex: Female
  Weight: 63.49 kg

DRUGS (1)
  1. APIXABAN [Suspect]
     Active Substance: APIXABAN
     Indication: CEREBROVASCULAR ACCIDENT PROPHYLAXIS
     Dosage: 5 MG, BID
     Route: 048

REACTIONS (6)
  - Cough [Unknown]
  - Pruritus [Not Recovered/Not Resolved]
  - Sneezing [Unknown]
  - Influenza [Unknown]
  - Pneumonia [Unknown]
  - Back pain [Unknown]
